FAERS Safety Report 10172683 (Version 1)
Quarter: 2014Q2

REPORT INFORMATION
  Report Type: Spontaneous
  Country: US (occurrence: US)
  Receive Date: 20140515
  Receipt Date: 20140515
  Transmission Date: 20141212
  Serious: No
  Sender: FDA-Public Use
  Company Number: US-B.I. PHARMACEUTICALS,INC./RIDGEFIELD-2014-BI-20187BP

PATIENT
  Sex: Female
  Weight: 81 kg

DRUGS (6)
  1. COMBIVENT [Suspect]
     Indication: ASTHMA
     Dosage: DOSE PER APPLICATION: 18 MCG /103 MCG; DAILY DOSE: 72 MCG/400 MCG
     Route: 055
     Dates: start: 2004, end: 201312
  2. CHANTIX [Concomitant]
     Indication: SMOKING CESSATION THERAPY
     Route: 048
  3. METOPROLOL [Concomitant]
     Indication: HYPERTENSION
     Route: 048
  4. PROTONIX [Concomitant]
     Indication: GASTRIC DISORDER
     Route: 048
  5. SINGULAIR [Concomitant]
     Indication: ASTHMA
     Route: 048
  6. ALLEGRA [Concomitant]
     Indication: SEASONAL ALLERGY
     Route: 048

REACTIONS (3)
  - Amnesia [Not Recovered/Not Resolved]
  - Vision blurred [Not Recovered/Not Resolved]
  - Off label use [Unknown]
